FAERS Safety Report 15019383 (Version 4)
Quarter: 2018Q3

REPORT INFORMATION
  Report Type: Spontaneous
  Country: FR (occurrence: FR)
  Receive Date: 20180617
  Receipt Date: 20180830
  Transmission Date: 20181010
  Serious: Yes (Other)
  Sender: FDA-Public Use
  Company Number: PHHY2018FR021646

PATIENT
  Age: 69 Year
  Sex: Male

DRUGS (5)
  1. DEXAFREE [Concomitant]
     Active Substance: DEXAMETHASONE SODIUM PHOSPHATE
     Indication: PRODUCT USED FOR UNKNOWN INDICATION
     Dosage: 4 GTT, QID PER WEEK FOR 1 MONTH
     Route: 065
  2. OCUFEN [Concomitant]
     Active Substance: FLURBIPROFEN SODIUM
     Indication: PRODUCT USED FOR UNKNOWN INDICATION
     Dosage: UNK UNK, QID FOR 1 MONTH
     Route: 065
  3. TOBREX [Concomitant]
     Active Substance: TOBRAMYCIN
     Indication: PRODUCT USED FOR UNKNOWN INDICATION
     Dosage: UNK UNK, QID
     Route: 065
  4. BSS [Suspect]
     Active Substance: CALCIUM CHLORIDE\MAGNESIUM CHLORIDE\POTASSIUM CHLORIDE\SODIUM ACETATE\SODIUM CHLORIDE\SODIUM CITRATE
     Indication: EYE IRRIGATION
     Dosage: UNK
     Route: 031
     Dates: start: 20180420, end: 20180420
  5. STERDEX [Concomitant]
     Active Substance: DEXAMETHASONE\OXYTETRACYCLINE
     Indication: PRODUCT USED FOR UNKNOWN INDICATION
     Dosage: IN THE EVENING 7 DAYS
     Route: 065

REACTIONS (1)
  - Macular oedema [Not Recovered/Not Resolved]

NARRATIVE: CASE EVENT DATE: 20180606
